FAERS Safety Report 21151513 (Version 1)
Quarter: 2022Q3

REPORT INFORMATION
  Report Type: Spontaneous
  Country: US (occurrence: US)
  Receive Date: 20220730
  Receipt Date: 20220730
  Transmission Date: 20221027
  Serious: No
  Sender: FDA-Public Use
  Company Number: US-Accord-253421

PATIENT
  Sex: Male
  Weight: 88.45 kg

DRUGS (5)
  1. AMITRIPTYLINE HYDROCHLORIDE [Suspect]
     Active Substance: AMITRIPTYLINE HYDROCHLORIDE
     Indication: Headache
     Dosage: ONCE A DAY
     Dates: start: 202111
  2. TOPIRAMATE [Concomitant]
     Active Substance: TOPIRAMATE
     Dosage: TWICE
     Route: 048
  3. LISINOPRIL [Concomitant]
     Active Substance: LISINOPRIL
     Dosage: ONCE A DAY
     Route: 048
  4. ASTELIN [Concomitant]
     Active Substance: AZELASTINE HYDROCHLORIDE
  5. AMITRIPTYLINE HYDROCHLORIDE [Suspect]
     Active Substance: AMITRIPTYLINE HYDROCHLORIDE
     Indication: Headache
     Dosage: ONCE A DAY
     Dates: start: 202112

REACTIONS (2)
  - Drug ineffective [Unknown]
  - Off label use [Unknown]
